FAERS Safety Report 8511990-X (Version None)
Quarter: 2012Q3

REPORT INFORMATION
  Report Type: 
  Country: None (occurrence: None)
  Receive Date: 20120716
  Receipt Date: 20120713
  Transmission Date: 20120928
  Serious: Yes (Hospitalization)
  Sender: FDA-Public Use
  Company Number: PHHO2012BE009824

PATIENT
  Sex: Female

DRUGS (4)
  1. TAMOXIFEN CITRATE [Concomitant]
     Indication: BREAST CANCER
     Dosage: 20 MG, / DAY
     Route: 048
     Dates: start: 20110912, end: 20111223
  2. SYMBICORT [Concomitant]
     Indication: ASTHMA
     Dosage: 100/6, BID
     Dates: start: 20090826
  3. LETROZOLE [Suspect]
     Indication: BREAST CANCER
     Dosage: 2.5 MG, / DAY
     Route: 048
     Dates: start: 20110912, end: 20111223
  4. CETIRIZINE HCL [Concomitant]
     Indication: ASTHMA
     Dosage: 10 MG, QD
     Route: 048
     Dates: start: 20110615

REACTIONS (2)
  - AMNESIA [None]
  - DYSPNOEA [None]
